FAERS Safety Report 6389158-5 (Version None)
Quarter: 2009Q4

REPORT INFORMATION
  Report Type: 
  Country: None (occurrence: None)
  Receive Date: 20091006
  Receipt Date: 20090807
  Transmission Date: 20100525
  Serious: No
  Sender: FDA-Public Use
  Company Number: US-BAYER-200929834NA

PATIENT
  Age: 36 Year
  Sex: Female
  Weight: 91 kg

DRUGS (4)
  1. MIRENA [Suspect]
     Indication: CONTRACEPTION
     Route: 015
     Dates: start: 20080701
  2. FLEXERIL [Concomitant]
  3. VICODIN [Concomitant]
  4. NEMBUTAL [Concomitant]

REACTIONS (4)
  - ABDOMINAL PAIN [None]
  - MEDICAL DEVICE COMPLICATION [None]
  - NAUSEA [None]
  - VOMITING [None]
